FAERS Safety Report 5723256-1 (Version None)
Quarter: 2008Q2

REPORT INFORMATION
  Report Type: 
  Country: None (occurrence: None)
  Receive Date: 20080430
  Receipt Date: 20080422
  Transmission Date: 20081010
  Serious: Yes (Other)
  Sender: FDA-Public Use
  Company Number: US-ROCHE-550629

PATIENT
  Sex: Male
  Weight: 35.8 kg

DRUGS (4)
  1. TAMIFLU [Suspect]
     Route: 065
     Dates: start: 20080229
  2. AMOXICILLIN [Concomitant]
     Indication: EAR INFECTION
     Dates: start: 20080229
  3. STRATTERA [Concomitant]
  4. PERIACTIN [Concomitant]

REACTIONS (7)
  - CONFUSIONAL STATE [None]
  - DIZZINESS [None]
  - FATIGUE [None]
  - HEAD BANGING [None]
  - NAUSEA [None]
  - SOMNAMBULISM [None]
  - VOMITING [None]
